FAERS Safety Report 5216455-9 (Version None)
Quarter: 2007Q1

REPORT INFORMATION
  Report Type: 
  Country: None (occurrence: None)
  Receive Date: 20070118
  Receipt Date: 20070108
  Transmission Date: 20070707
  Serious: Yes (Other)
  Sender: FDA-Public Use
  Company Number: 07H-167-0311680-00

PATIENT
  Age: 54 Year
  Sex: Male

DRUGS (46)
  1. PROPOFOL [Suspect]
     Dosage: NOT REPORTED
  2. ACTRAPID (INSULIN HUMAN) [Suspect]
     Dosage: INTRAVENOUS
     Route: 042
  3. ALFENTANIL [Suspect]
     Dosage: NOT REPORTED
  4. AMOXICILLIN [Suspect]
     Dosage: 1 GM, 3 IN 1 D, INTRAVENOUS
     Route: 042
  5. AQUASEPT (TRICLOSAN) [Suspect]
     Dosage: NOT REPORTED
  6. BACTROBAN [Suspect]
     Dosage: NOT REPORTED
  7. CALCIUM CHLORIDE [Suspect]
     Dosage: NOT REPORTED
  8. CALCIUM GLUCONATE [Suspect]
     Dosage: 10 ML, NOT REPORTED
  9. CEFTRIAXONE [Suspect]
     Dosage: 2 GM, INTRAVENOUS
     Route: 042
  10. ENOXAPARIN SODIUM [Suspect]
     Dosage: 20 MG, 1 IN 1 D, SUBCUTANEOUS
     Route: 058
  11. DOBUTAMINE HCL [Suspect]
     Dosage: NOT REPORTED
  12. FLUCONAZOLE [Suspect]
     Dosage: 200 MG, 1 IN 1 D, INTRAVENOUS
     Route: 042
  13. FRAGMIN [Suspect]
     Dosage: 2500 IU, 1 IN 1 D, NOT REPORTED
  14. FUROSEMIDE [Suspect]
     Dosage: 20 MG, 2 IN 1 D, INTRAVENOUS
     Route: 042
  15. HYDROCORTISONE [Suspect]
     Dosage: 100 MG, 1 IN 1 D, NOT REPORTED
  16. LACTULOSE [Suspect]
     Dosage: 10 ML, NOT REPORTED
  17. LANSOPRAZOLE [Suspect]
     Dosage: 30 MG
  18. LORAZEPAM [Suspect]
     Dosage: NOT REPORTED
  19. MAGNESIUM SULFATE [Suspect]
     Dosage: NOT REPORTED
  20. NOREPINEPHRINE BITARTRATE [Suspect]
     Dosage: NOT REPORTED
  21. OMEPRAZOLE [Suspect]
     Dosage: 40 MG, INTRAVENOUS
     Route: 042
  22. ACETAMINOPHEN [Suspect]
     Dosage: NOT REPORTED
  23. PIRITON (CHLORPHENAMINE MALEATE) [Suspect]
     Dosage: 10 MG, 4 IN 1 D, INTRAVENOUS
     Route: 042
  24. POTASSIUM CHLORIDE [Suspect]
     Dosage: NOT REPORTED
  25. POTASSIUM PHOSPHATES [Suspect]
     Dosage: NOT REPORTED
  26. SALBUTAMOL (SALBUTAMOL) [Suspect]
     Dosage: NOT REPORTED, AS NECESSARY
  27. SANDO-K [Suspect]
     Indication: DRUG USE FOR UNKNOWN INDICATION
     Dosage: 2 ^DF^, 3 IN 1 DAY, NOT REPORTED
  28. SILVER SULFADIAZINE [Suspect]
     Indication: DRUG USE FOR UNKNOWN INDICATION
     Dosage: NOT REPORTED
  29. SIMVASTATIN [Suspect]
     Indication: DRUG USE FOR UNKNOWN INDICATION
     Dosage: 40 MG, 1 IN 1D
  30. SODIUM BICARBONATE IN PLASTIC CONTAINER [Suspect]
     Indication: DRUG USE FOR UNKNOWN INDICATION
     Dosage: 100 MG, 1 IN 1 HR, INTRAVENOUS
     Route: 042
  31. SODIUM CHLORIDE 0.9% (SODIUM CHLORIDE) [Suspect]
     Indication: DRUG USE FOR UNKNOWN INDICATION
     Dosage: INTRAVENOUS
     Route: 042
  32. THIAMIN CHLORIDE TAB [Suspect]
     Indication: DRUG USE FOR UNKNOWN INDICATION
     Dosage: 100 MG, 1 IN 1D, ORAL
     Route: 048
  33. TINZAPARIN (HEPARIN-FRACTION, SODIUM SALT) [Suspect]
     Indication: DRUG USE FOR UNKNOWN INDICATION
     Dosage: 3500 IU, NOT REPORTED
  34. PHYTONADIONE [Suspect]
     Indication: DRUG USE FOR UNKNOWN INDICATION
     Dosage: NOT REPORTED
  35. ASPIRIN [Concomitant]
  36. ATROVENT [Concomitant]
  37. CIPORFLOXACIN (CIPROFLOXACIN) [Concomitant]
  38. CO-AMOXICLAV (CLAVULIN) [Concomitant]
  39. AMOXICILLIN [Concomitant]
  40. ERYTHROMYCIN [Concomitant]
  41. METOCLOPRAMIDE [Concomitant]
  42. MIDODRINE HYDROCHLORIDE [Concomitant]
  43. PANTOPRAZOLE SODIUM [Concomitant]
  44. TAZOCIN (PIP/TAZO) [Concomitant]
  45. VANCOMYCIN [Concomitant]
  46. ZOPICLONE (ZOPICLONE) [Concomitant]

REACTIONS (1)
  - TOXIC EPIDERMAL NECROLYSIS [None]
